FAERS Safety Report 7440603-3 (Version None)
Quarter: 2011Q2

REPORT INFORMATION
  Report Type: 
  Country: None (occurrence: None)
  Receive Date: 20110427
  Receipt Date: 20110419
  Transmission Date: 20111010
  Serious: Yes (Hospitalization)
  Sender: FDA-Public Use
  Company Number: B0714061A

PATIENT
  Age: 31 Year
  Sex: Female

DRUGS (9)
  1. CEPHALEXIN [Suspect]
     Indication: INFECTION
     Route: 065
     Dates: start: 20110331
  2. ACICLOVIR [Suspect]
     Dosage: 30MGK PER DAY
     Route: 065
     Dates: start: 20110401
  3. NOVORAPID [Concomitant]
     Route: 065
  4. CAMPATH [Suspect]
     Indication: MULTIPLE SCLEROSIS
     Dosage: 12MG PER DAY
     Route: 042
     Dates: start: 20110328, end: 20110331
  5. LEVOTHYROXINE SODIUM [Concomitant]
     Route: 065
  6. SIMVASTATIN [Concomitant]
     Route: 065
  7. GLICLAZIDE [Concomitant]
     Route: 065
  8. METFORMIN [Concomitant]
     Route: 065
  9. INSULIN GLARGINE [Concomitant]
     Route: 065

REACTIONS (2)
  - HERPES ZOSTER [None]
  - LIVER FUNCTION TEST ABNORMAL [None]
